FAERS Safety Report 7590140-0 (Version None)
Quarter: 2011Q3

REPORT INFORMATION
  Report Type: 
  Country: None (occurrence: None)
  Receive Date: 20110705
  Receipt Date: 20110630
  Transmission Date: 20111222
  Serious: Yes (Hospitalization)
  Sender: FDA-Public Use
  Company Number: B0730615A

PATIENT
  Age: 39 Year
  Sex: Male

DRUGS (1)
  1. AVANDIA [Suspect]
     Route: 048
     Dates: start: 20020108, end: 20030919

REACTIONS (5)
  - PERICARDIAL DRAINAGE [None]
  - PERICARDITIS [None]
  - PERICARDIAL EXCISION [None]
  - TACHYCARDIA [None]
  - PERICARDIAL EFFUSION [None]
